FAERS Safety Report 20843155 (Version 1)
Quarter: 2022Q2

REPORT INFORMATION
  Report Type: Spontaneous
  Country: US (occurrence: None)
  Receive Date: 20220517
  Receipt Date: 20220517
  Transmission Date: 20220721
  Serious: No
  Sender: FDA-Public Use
  Company Number: None

PATIENT
  Age: 68 Year
  Sex: Male

DRUGS (1)
  1. INFLECTRA [Suspect]
     Active Substance: INFLIXIMAB-DYYB
     Dosage: 5MG OTHER ORAL?
     Route: 048
     Dates: start: 2022

REACTIONS (4)
  - Therapy cessation [None]
  - Hernia repair [None]
  - Infection [None]
  - COVID-19 [None]

NARRATIVE: CASE EVENT DATE: 20220517
